FAERS Safety Report 5913555-2 (Version None)
Quarter: 2008Q4

REPORT INFORMATION
  Report Type: 
  Country: None (occurrence: None)
  Receive Date: 20081006
  Receipt Date: 20080929
  Transmission Date: 20090506
  Serious: Yes (Other)
  Sender: FDA-Public Use
  Company Number: 20298

PATIENT
  Sex: Female

DRUGS (2)
  1. METHOTREXATE [Suspect]
     Dates: start: 20070201, end: 20070701
  2. ENBREL [Suspect]
     Dates: start: 20070201, end: 20070701

REACTIONS (1)
  - NEOPLASM MALIGNANT [None]
